FAERS Safety Report 8227608-X (Version None)
Quarter: 2012Q1

REPORT INFORMATION
  Report Type: 
  Country: None (occurrence: None)
  Receive Date: 20120322
  Receipt Date: 20120309
  Transmission Date: 20120608
  Serious: Yes (Other)
  Sender: FDA-Public Use
  Company Number: BE-ELI_LILLY_AND_COMPANY-BE201203003540

PATIENT
  Sex: Female

DRUGS (1)
  1. OLANZAPINE [Suspect]
     Dosage: 405 MG, MONTHLY (1/M)
     Route: 030

REACTIONS (5)
  - AMNESIA [None]
  - DYSARTHRIA [None]
  - SOMNOLENCE [None]
  - CONFUSIONAL STATE [None]
  - SEDATION [None]
